FAERS Safety Report 13129436 (Version 3)
Quarter: 2017Q1

REPORT INFORMATION
  Report Type: Report from Study
  Country: US (occurrence: US)
  Receive Date: 20170119
  Receipt Date: 20170315
  Transmission Date: 20170428
  Serious: Yes (Other)
  Sender: FDA-Public Use
  Company Number: US-AMGEN-USASL2017007276

PATIENT
  Age: 59 Year
  Sex: Female

DRUGS (3)
  1. ENBREL [Suspect]
     Active Substance: ETANERCEPT
     Dosage: 50 MG, QWK
     Route: 065
  2. ENBREL [Suspect]
     Active Substance: ETANERCEPT
     Dosage: 50 MG, ONCE WEEKLY
     Route: 065
     Dates: start: 201609, end: 201612
  3. ENBREL [Suspect]
     Active Substance: ETANERCEPT
     Indication: PSORIASIS
     Dosage: UNK UNK, TWICE WEEKLY
     Route: 065

REACTIONS (7)
  - Pain in extremity [Recovering/Resolving]
  - Drug dose omission [Unknown]
  - Nail injury [Unknown]
  - Sleep disorder due to a general medical condition [Unknown]
  - Abasia [Unknown]
  - Psoriasis [Unknown]
  - Burning sensation [Unknown]

NARRATIVE: CASE EVENT DATE: 20170305
